FAERS Safety Report 15665073 (Version 2)
Quarter: 2018Q4

REPORT INFORMATION
  Report Type: Report from Study
  Country: US (occurrence: US)
  Receive Date: 20181128
  Receipt Date: 20181130
  Transmission Date: 20190205
  Serious: Yes (Other)
  Sender: FDA-Public Use
  Company Number: US-SA-2018SA054954

PATIENT
  Age: 57 Year
  Sex: Female

DRUGS (4)
  1. INSULIN GLARGINE/LIXISENATIDE [Suspect]
     Active Substance: INSULIN GLARGINE\LIXISENATIDE
     Dosage: 25 DF,UNK
     Route: 058
     Dates: start: 2018
  2. INSULIN GLARGINE/LIXISENATIDE [Suspect]
     Active Substance: INSULIN GLARGINE\LIXISENATIDE
     Indication: TYPE 2 DIABETES MELLITUS
     Dosage: 25 DF,UNK
     Route: 058
     Dates: start: 20180129
  3. SOLOSTAR [Suspect]
     Active Substance: DEVICE
     Dosage: UNK UNK, UNK
     Dates: start: 20180129
  4. SOLOSTAR [Suspect]
     Active Substance: DEVICE
     Dosage: UNK UNK, UNK
     Dates: start: 2018

REACTIONS (5)
  - Injection site pain [Unknown]
  - Blood glucose increased [Unknown]
  - Impaired gastric emptying [Recovered/Resolved]
  - Feeding disorder [Unknown]
  - Nausea [Unknown]

NARRATIVE: CASE EVENT DATE: 20180129
